FAERS Safety Report 6965015-8 (Version None)
Quarter: 2010Q3

REPORT INFORMATION
  Report Type: 
  Country: None (occurrence: None)
  Receive Date: 20100903
  Receipt Date: 20100824
  Transmission Date: 20110219
  Serious: No
  Sender: FDA-Public Use
  Company Number: CA-SANOFI-AVENTIS-2010SA047823

PATIENT
  Age: 70 Year
  Sex: Female
  Weight: 82 kg

DRUGS (5)
  1. MULTAQ [Suspect]
     Indication: ATRIAL FIBRILLATION
     Route: 048
     Dates: start: 20100723
  2. ENALAPRIL [Concomitant]
     Route: 048
  3. PARIET [Concomitant]
     Route: 048
  4. COUMADIN [Concomitant]
     Indication: ATRIAL FIBRILLATION
     Route: 048
  5. HYDROCHLOROTHIAZIDE [Concomitant]
     Route: 048

REACTIONS (1)
  - POLLAKIURIA [None]
